FAERS Safety Report 6329061-X (Version None)
Quarter: 2009Q3

REPORT INFORMATION
  Report Type: 
  Country: None (occurrence: None)
  Receive Date: 20090818
  Receipt Date: 20090709
  Transmission Date: 20100115
  Serious: No
  Sender: FDA-Public Use
  Company Number: WAES 0907USA01274

PATIENT
  Age: 69 Year
  Sex: Female

DRUGS (6)
  1. JANUVIA [Suspect]
     Indication: DIABETES MELLITUS
     Dosage: 100 MG/DAILY/PO
     Route: 048
     Dates: start: 20090629, end: 20090708
  2. HUMALOG [Concomitant]
  3. HYZAAR [Concomitant]
  4. LANTUS [Concomitant]
  5. ZOCOR [Concomitant]
  6. ASPIRIN [Concomitant]

REACTIONS (2)
  - GASTROINTESTINAL PAIN [None]
  - MYALGIA [None]
